FAERS Safety Report 7151146-9 (Version None)
Quarter: 2010Q4

REPORT INFORMATION
  Report Type: 
  Country: None (occurrence: None)
  Receive Date: 20101210
  Receipt Date: 20101130
  Transmission Date: 20110411
  Serious: Yes (Hospitalization)
  Sender: FDA-Public Use
  Company Number: US-ACTELION-A-US2010-41851

PATIENT

DRUGS (2)
  1. TRACLEER [Suspect]
     Indication: PULMONARY ARTERIAL HYPERTENSION
     Dosage: UNK
     Route: 048
     Dates: start: 20090904
  2. CALCIUM CHANNEL BLOCKERS [Concomitant]

REACTIONS (3)
  - HEART RATE IRREGULAR [None]
  - HEPATIC FUNCTION ABNORMAL [None]
  - PNEUMONIA [None]
